FAERS Safety Report 16794865 (Version 1)
Quarter: 2019Q3

REPORT INFORMATION
  Report Type: Spontaneous
  Country: US (occurrence: US)
  Receive Date: 20190911
  Receipt Date: 20190911
  Transmission Date: 20191005
  Serious: Yes (Other)
  Sender: FDA-Public Use
  Company Number: US-AMNEAL PHARMACEUTICALS-2019-AMRX-01824

PATIENT
  Age: 18 Year
  Sex: Male

DRUGS (1)
  1. ISOTRETINOIN. [Suspect]
     Active Substance: ISOTRETINOIN
     Indication: ACNE
     Dosage: TOTAL CUMULATIVE DOSE OF 243 MG/KG
     Route: 048

REACTIONS (5)
  - Lip erythema [Recovered/Resolved]
  - Erythema [Recovered/Resolved]
  - Urethritis [Recovered/Resolved]
  - Ingrowing nail [Recovered/Resolved]
  - Paronychia [Recovered/Resolved]
